FAERS Safety Report 9689723 (Version 1)
Quarter: 2013Q4

REPORT INFORMATION
  Report Type: Spontaneous
  Country: ES (occurrence: ES)
  Receive Date: 20131115
  Receipt Date: 20131115
  Transmission Date: 20140711
  Serious: Yes (Other)
  Sender: FDA-Public Use
  Company Number: ES-JNJFOC-20131105869

PATIENT
  Age: 46 Year
  Sex: Female

DRUGS (1)
  1. SIMPONI [Suspect]
     Indication: SPONDYLOARTHROPATHY
     Dosage: 28 DAYS INJECTION
     Route: 058
     Dates: start: 20130515, end: 20130804

REACTIONS (1)
  - Cellulitis [Recovering/Resolving]
